FAERS Safety Report 8290137-1 (Version None)
Quarter: 2012Q2

REPORT INFORMATION
  Report Type: 
  Country: None (occurrence: None)
  Receive Date: 20120417
  Receipt Date: 20120410
  Transmission Date: 20120825
  Serious: Yes (Other)
  Sender: FDA-Public Use
  Company Number: PHHY2012FR027007

PATIENT
  Sex: Male

DRUGS (1)
  1. AFINITOR [Suspect]
     Indication: RENAL CANCER
     Dosage: 10 MG, PER DAY
     Dates: start: 20110815

REACTIONS (3)
  - PRODUCTIVE COUGH [None]
  - BLOOD URINE PRESENT [None]
  - RALES [None]
